FAERS Safety Report 14630250 (Version 13)
Quarter: 2018Q4

REPORT INFORMATION
  Report Type: Report from Study
  Country: US (occurrence: US)
  Receive Date: 20180313
  Receipt Date: 20181102
  Transmission Date: 20190204
  Serious: Yes (Death, Hospitalization, Disabling, Other)
  Sender: FDA-Public Use
  Company Number: US-ROCHE-2083984

PATIENT
  Age: 60 Year
  Sex: Female
  Weight: 51 kg

DRUGS (57)
  1. ATEZOLIZUMAB. [Suspect]
     Active Substance: ATEZOLIZUMAB
     Indication: SMALL CELL LUNG CANCER EXTENSIVE STAGE
     Dosage: THE LAST DOSE OF ATEZOLIZUMAB PRIOR TO SAE ONSET WAS ON 20 FEBRUARY 2018 (CYCLE 2/ DAY 1).
     Route: 042
     Dates: start: 20180130
  2. ATEZOLIZUMAB. [Suspect]
     Active Substance: ATEZOLIZUMAB
     Route: 065
     Dates: start: 20180530
  3. BLINDED TRILACICLIB [Suspect]
     Active Substance: TRILACICLIB
     Route: 065
     Dates: start: 20180510
  4. ALOXI [Concomitant]
     Active Substance: PALONOSETRON HYDROCHLORIDE
     Indication: PROPHYLAXIS OF NAUSEA AND VOMITING
     Route: 042
     Dates: start: 20180130
  5. PACKED RED BLOOD CELL [Concomitant]
     Active Substance: HUMAN RED BLOOD CELL
     Indication: ANAEMIA
     Dosage: 1 UNIT
     Route: 042
     Dates: start: 20180222
  6. MIRALAX [Concomitant]
     Active Substance: POLYETHYLENE GLYCOL 3350
     Route: 048
     Dates: start: 20180323
  7. POLYETHYLENE GLYCOL [Concomitant]
     Active Substance: POLYETHYLENE GLYCOLS
     Route: 048
     Dates: start: 20180323
  8. ETOPOSIDE PHOSPHATE [Suspect]
     Active Substance: ETOPOSIDE PHOSPHATE
     Route: 065
     Dates: start: 20180220
  9. ETOPOSIDE PHOSPHATE [Suspect]
     Active Substance: ETOPOSIDE PHOSPHATE
     Route: 065
     Dates: start: 20180412
  10. ETOPOSIDE PHOSPHATE [Suspect]
     Active Substance: ETOPOSIDE PHOSPHATE
     Route: 065
     Dates: start: 20180508
  11. EMEND [Concomitant]
     Active Substance: APREPITANT
     Indication: PROPHYLAXIS OF NAUSEA AND VOMITING
     Route: 042
     Dates: start: 20180130
  12. TRAMADOL. [Concomitant]
     Active Substance: TRAMADOL
     Indication: ABDOMINAL PAIN
     Route: 048
     Dates: start: 20180323
  13. BLINDED TRILACICLIB [Suspect]
     Active Substance: TRILACICLIB
     Dosage: INDUCTION DAY 02 CYCLE 01, 372 (UNIT NOT REPORTED)
     Route: 042
     Dates: start: 20180131, end: 20180131
  14. CARBOPLATIN. [Suspect]
     Active Substance: CARBOPLATIN
     Route: 065
     Dates: start: 20180410
  15. ETOPOSIDE PHOSPHATE [Suspect]
     Active Substance: ETOPOSIDE PHOSPHATE
     Route: 065
     Dates: start: 20180201
  16. MEGESTROL [Concomitant]
     Active Substance: MEGESTROL
     Route: 048
     Dates: start: 20180213
  17. FERROUS SULFATE. [Concomitant]
     Active Substance: FERROUS SULFATE
     Indication: ANAEMIA
     Route: 048
     Dates: start: 20180226
  18. BLINDED TRILACICLIB [Suspect]
     Active Substance: TRILACICLIB
     Route: 065
     Dates: start: 20180201
  19. BLINDED TRILACICLIB [Suspect]
     Active Substance: TRILACICLIB
     Route: 065
     Dates: start: 20180220
  20. BLINDED TRILACICLIB [Suspect]
     Active Substance: TRILACICLIB
     Route: 065
     Dates: start: 20180410
  21. ETOPOSIDE PHOSPHATE [Suspect]
     Active Substance: ETOPOSIDE PHOSPHATE
     Route: 065
     Dates: start: 20180410
  22. PROTONIX [Concomitant]
     Active Substance: PANTOPRAZOLE SODIUM
     Route: 048
     Dates: start: 20180106
  23. NORMAL SALINE [Concomitant]
     Active Substance: SODIUM CHLORIDE
     Route: 042
     Dates: start: 20180213, end: 20180213
  24. TYLENOL [Concomitant]
     Active Substance: ACETAMINOPHEN
     Route: 048
     Dates: start: 20180222
  25. HYOSCYAMINE. [Concomitant]
     Active Substance: HYOSCYAMINE
     Indication: ABDOMINAL PAIN
     Route: 048
     Dates: start: 20180323
  26. LACTULOSE. [Concomitant]
     Active Substance: LACTULOSE
     Route: 048
     Dates: start: 20180329
  27. REGULAR INSULIN [Concomitant]
     Active Substance: INSULIN NOS
     Indication: HYPERGLYCAEMIA
     Dosage: 100 UNITS
     Route: 058
     Dates: start: 20180226, end: 20180313
  28. ATEZOLIZUMAB. [Suspect]
     Active Substance: ATEZOLIZUMAB
     Route: 065
     Dates: start: 20180410
  29. ATEZOLIZUMAB. [Suspect]
     Active Substance: ATEZOLIZUMAB
     Route: 065
     Dates: start: 20180508
  30. BLINDED TRILACICLIB [Suspect]
     Active Substance: TRILACICLIB
     Indication: SMALL CELL LUNG CANCER EXTENSIVE STAGE
     Dosage: INDUCTION DAY 02 CYCLE 01, 372.00 (UNIT NOT REPORTED)
     Route: 042
     Dates: start: 20180130, end: 20180130
  31. BLINDED TRILACICLIB [Suspect]
     Active Substance: TRILACICLIB
     Route: 065
     Dates: start: 20180411
  32. CARBOPLATIN. [Suspect]
     Active Substance: CARBOPLATIN
     Indication: SMALL CELL LUNG CANCER EXTENSIVE STAGE
     Dosage: CARBOPLATIN WILL BE ADMINISTERED ON DAY 1 OF EACH 21-DAY CYCLE USING THE CALVERT FORMULA WITH A TARG
     Route: 042
     Dates: start: 20180130
  33. CARBOPLATIN. [Suspect]
     Active Substance: CARBOPLATIN
     Dosage: CARBOPLATIN WILL BE ADMINISTERED ON DAY 1 OF CYCLE 02 USING THE CALVERT FORMULA WITH A TARGET AUC =
     Route: 042
     Dates: start: 20180220, end: 20180220
  34. CARBOPLATIN. [Suspect]
     Active Substance: CARBOPLATIN
     Route: 065
     Dates: start: 20180508
  35. ETOPOSIDE PHOSPHATE [Suspect]
     Active Substance: ETOPOSIDE PHOSPHATE
     Dosage: INDUCTION DAY 02 CYCLE 01,
     Route: 042
     Dates: start: 20180131
  36. LEVOTHYROXINE. [Concomitant]
     Active Substance: LEVOTHYROXINE
     Route: 048
     Dates: start: 20180410
  37. BLINDED TRILACICLIB [Suspect]
     Active Substance: TRILACICLIB
     Dosage: INDUCTION DAY 03 CYCLE 02,
     Route: 042
     Dates: start: 20180222
  38. BLINDED TRILACICLIB [Suspect]
     Active Substance: TRILACICLIB
     Route: 065
     Dates: start: 20180221
  39. BLINDED TRILACICLIB [Suspect]
     Active Substance: TRILACICLIB
     Route: 065
     Dates: start: 20180508
  40. ETOPOSIDE PHOSPHATE [Suspect]
     Active Substance: ETOPOSIDE PHOSPHATE
     Dosage: INDUCTION DAY 03 CYCLE 02: ACTUAL DOSE RECEIVED 155 (UNIT NOT REPORTED)
     Route: 042
     Dates: start: 20180222
  41. ETOPOSIDE PHOSPHATE [Suspect]
     Active Substance: ETOPOSIDE PHOSPHATE
     Route: 065
     Dates: start: 20180221
  42. ETOPOSIDE PHOSPHATE [Suspect]
     Active Substance: ETOPOSIDE PHOSPHATE
     Route: 065
     Dates: start: 20180411
  43. DECADRON [Concomitant]
     Active Substance: DEXAMETHASONE
     Indication: PROPHYLAXIS OF NAUSEA AND VOMITING
     Route: 042
     Dates: start: 20180220
  44. ATORVASTATIN [Concomitant]
     Active Substance: ATORVASTATIN
     Route: 048
     Dates: start: 20180228
  45. ATEZOLIZUMAB. [Suspect]
     Active Substance: ATEZOLIZUMAB
     Route: 042
     Dates: start: 20180220, end: 20180220
  46. BLINDED TRILACICLIB [Suspect]
     Active Substance: TRILACICLIB
     Route: 065
     Dates: start: 20180412
  47. BLINDED TRILACICLIB [Suspect]
     Active Substance: TRILACICLIB
     Route: 065
     Dates: start: 20180509
  48. ETOPOSIDE PHOSPHATE [Suspect]
     Active Substance: ETOPOSIDE PHOSPHATE
     Indication: SMALL CELL LUNG CANCER EXTENSIVE STAGE
     Dosage: INDUCTION DAY 01 CYCLE 01: ACTUAL DOSE RECEIVED 155 (UNIT NOT REPORTED), 155 (UNIT NOT REPORTED)
     Route: 042
     Dates: start: 20180130, end: 20180130
  49. ETOPOSIDE PHOSPHATE [Suspect]
     Active Substance: ETOPOSIDE PHOSPHATE
     Route: 065
     Dates: start: 20180510
  50. NORCO [Concomitant]
     Active Substance: ACETAMINOPHEN\HYDROCODONE BITARTRATE
     Route: 048
     Dates: start: 20180115
  51. BENADRYL [Concomitant]
     Active Substance: DIPHENHYDRAMINE HYDROCHLORIDE
     Route: 042
     Dates: start: 20180222
  52. LEVOTHYROXINE. [Concomitant]
     Active Substance: LEVOTHYROXINE
     Indication: HYPOTHYROIDISM
     Route: 048
     Dates: start: 20180323, end: 20180410
  53. DOCUSATE SODIUM. [Concomitant]
     Active Substance: DOCUSATE SODIUM
     Indication: CONSTIPATION
     Route: 048
     Dates: start: 20180301
  54. SENNOSIDES. [Concomitant]
     Active Substance: SENNOSIDES
     Route: 048
     Dates: start: 20180323
  55. DEXAMETHASONE. [Concomitant]
     Active Substance: DEXAMETHASONE
     Route: 042
     Dates: start: 20180226, end: 20180312
  56. ETOPOSIDE PHOSPHATE [Suspect]
     Active Substance: ETOPOSIDE PHOSPHATE
     Route: 065
     Dates: start: 20180509
  57. COMPAZINE [Concomitant]
     Active Substance: PROCHLORPERAZINE MALEATE
     Indication: NAUSEA
     Route: 048
     Dates: start: 20180109

REACTIONS (2)
  - Hyperthyroidism [Not Recovered/Not Resolved]
  - Cerebrovascular accident [Recovered/Resolved with Sequelae]

NARRATIVE: CASE EVENT DATE: 20180219
